FAERS Safety Report 18766857 (Version 1)
Quarter: 2021Q1

REPORT INFORMATION
  Report Type: Spontaneous
  Country: US (occurrence: US)
  Receive Date: 20210120
  Receipt Date: 20210120
  Transmission Date: 20210419
  Serious: Yes (Hospitalization)
  Sender: FDA-Public Use
  Company Number: None

PATIENT
  Age: 74 Year
  Sex: Male

DRUGS (2)
  1. N/A [Concomitant]
     Active Substance: UNSPECIFIED INGREDIENT
  2. ENTECAVIR. [Suspect]
     Active Substance: ENTECAVIR
     Indication: LIVER TRANSPLANT
     Route: 048
     Dates: start: 20180103

REACTIONS (1)
  - Hospitalisation [None]
